FAERS Safety Report 10633471 (Version 1)
Quarter: 2014Q4

REPORT INFORMATION
  Report Type: Spontaneous
  Country: US (occurrence: US)
  Receive Date: 20141205
  Receipt Date: 20141205
  Transmission Date: 20150529
  Serious: Yes (Other)
  Sender: FDA-Public Use
  Company Number: US-TARO PHARMACEUTICALS U.S.A., INC-2014SUN02768

PATIENT
  Age: 44 Year
  Sex: Female

DRUGS (1)
  1. MUPIROCIN OINTMENT USP, 2% [Suspect]
     Active Substance: MUPIROCIN
     Indication: BLISTER
     Dosage: UNK
     Route: 065
     Dates: start: 201404

REACTIONS (4)
  - Urticaria [Recovering/Resolving]
  - Arthralgia [Recovering/Resolving]
  - Serum sickness [Recovering/Resolving]
  - Pyrexia [Recovering/Resolving]

NARRATIVE: CASE EVENT DATE: 201404
